FAERS Safety Report 7103297-2 (Version None)
Quarter: 2010Q4

REPORT INFORMATION
  Report Type: 
  Country: None (occurrence: None)
  Receive Date: 20101115
  Receipt Date: 20101105
  Transmission Date: 20110411
  Serious: Yes (Other)
  Sender: FDA-Public Use
  Company Number: US-SANOFI-AVENTIS-2010SA068890

PATIENT
  Sex: Female

DRUGS (2)
  1. APIDRA [Suspect]
     Route: 065
     Dates: start: 20090101
  2. INSULIN DETEMIR [Suspect]
     Route: 065

REACTIONS (4)
  - ERUCTATION [None]
  - MYOCARDIAL INFARCTION [None]
  - NAUSEA [None]
  - SALIVARY HYPERSECRETION [None]
